FAERS Safety Report 6061887-2 (Version None)
Quarter: 2009Q1

REPORT INFORMATION
  Report Type: 
  Country: None (occurrence: None)
  Receive Date: 20090202
  Receipt Date: 20090120
  Transmission Date: 20090719
  Serious: Yes (Hospitalization)
  Sender: FDA-Public Use
  Company Number: PHHY2009FR02437

PATIENT
  Sex: Male

DRUGS (5)
  1. STERDEX (NVO) [Suspect]
     Indication: CATARACT OPERATION
     Dosage: 1 DF, ONCE/SINGLE
     Dates: start: 20080922
  2. TROPICAMIDE (NVO) [Suspect]
     Indication: CATARACT OPERATION
     Dosage: 1 DF, ONCE/SINGLE
     Dates: start: 20080922
  3. PILOCARPINE [Suspect]
     Indication: CATARACT OPERATION
     Dosage: 1 DF, ONCE/SINGLE
     Dates: start: 20080922
  4. NEOSYNEPHRINE [Suspect]
     Indication: CATARACT OPERATION
     Dosage: 1 DF, ONCE/SINGLE
     Dates: start: 20080922
  5. DEXAMETHASONE [Suspect]
     Indication: CATARACT OPERATION
     Dosage: 1 DF, ONCE/SINGLE
     Dates: start: 20080922

REACTIONS (4)
  - ENDOPHTHALMITIS [None]
  - UVEITIS [None]
  - VISUAL ACUITY REDUCED [None]
  - VITRITIS [None]
